FAERS Safety Report 9955846 (Version 2)
Quarter: 2014Q1

REPORT INFORMATION
  Report Type: Report from Study
  Country: US (occurrence: US)
  Receive Date: 20140304
  Receipt Date: 20140304
  Transmission Date: 20141002
  Serious: Yes (Other)
  Sender: FDA-Public Use
  Company Number: US-ABBVIE-13P-163-1086690-00

PATIENT
  Age: 66 Year
  Sex: Female

DRUGS (1)
  1. HUMIRA [Suspect]
     Indication: RED BLOOD CELL COUNT ABNORMAL
     Route: 058
     Dates: end: 201303

REACTIONS (1)
  - Knee arthroplasty [Recovered/Resolved]
